FAERS Safety Report 14944964 (Version 1)
Quarter: 2018Q2

REPORT INFORMATION
  Report Type: Spontaneous
  Country: DE (occurrence: DE)
  Receive Date: 20180529
  Receipt Date: 20180529
  Transmission Date: 20180711
  Serious: Yes (Death, Other)
  Sender: FDA-Public Use
  Company Number: DE-ASTELLAS-2018US024448

PATIENT
  Age: 69 Year
  Sex: Female

DRUGS (2)
  1. MYCOPHENOLATE MOFETIL. [Concomitant]
     Active Substance: MYCOPHENOLATE MOFETIL
     Indication: LIVER TRANSPLANT
  2. TACROLIMUS. [Suspect]
     Active Substance: TACROLIMUS
     Indication: LIVER TRANSPLANT
     Dosage: UNK UNK, UNKNOWN FREQ. (TACROLIMUS LEVEL BETWEEN 5 AND 8 NG/ML)
     Route: 065

REACTIONS (7)
  - Pneumomediastinum [Unknown]
  - Septic shock [Fatal]
  - Subcutaneous emphysema [Unknown]
  - Oesophageal perforation [Unknown]
  - Mediastinitis [Fatal]
  - General physical health deterioration [Unknown]
  - Oropharyngeal pain [Unknown]
